FAERS Safety Report 16534006 (Version 7)
Quarter: 2020Q1

REPORT INFORMATION
  Report Type: Other
  Country: BG (occurrence: BG)
  Receive Date: 20190704
  Receipt Date: 20200212
  Transmission Date: 20200409
  Serious: Yes (Death, Hospitalization)
  Sender: FDA-Public Use
  Company Number: BG-CELLTRION INC.-2019BG022471

PATIENT

DRUGS (6)
  1. PERTUZUMAB. [Suspect]
     Active Substance: PERTUZUMAB
     Dosage: 420 MILLIGRAM, Q2W (420 MILLIGRAM, Q3W)
     Route: 042
     Dates: start: 20181121
  2. TRASTUZUMAB (UNKNOWN) [Suspect]
     Active Substance: TRASTUZUMAB
     Indication: HER-2 POSITIVE BREAST CANCER
     Dosage: 450 MG, Q3W - EVERY 3 WEEKS
     Route: 041
     Dates: start: 20181121
  3. TRASTUZUMAB (UNKNOWN) [Suspect]
     Active Substance: TRASTUZUMAB
     Dosage: 450 MILLIGRAM, Q2W (450 MILLIGRAM, Q3W)
     Route: 041
     Dates: start: 20181121
  4. TAXOTERE [Suspect]
     Active Substance: DOCETAXEL
     Indication: HER-2 POSITIVE BREAST CANCER
     Dosage: 160 MG, Q3W - EVERY 3 WEEKS
     Route: 042
     Dates: start: 20181121
  5. PERTUZUMAB. [Suspect]
     Active Substance: PERTUZUMAB
     Indication: HER-2 POSITIVE BREAST CANCER
     Dosage: 420 MG, Q3W - EVERY 3 WEEKS
     Route: 042
     Dates: start: 20181121
  6. TAXOTERE [Suspect]
     Active Substance: DOCETAXEL
     Dosage: 160 MILLIGRAM, Q2W (160 MILLIGRAM, Q3W)
     Route: 042
     Dates: start: 20181121

REACTIONS (3)
  - Pulmonary embolism [Fatal]
  - Febrile neutropenia [Recovered/Resolved with Sequelae]
  - Colitis ischaemic [Recovered/Resolved with Sequelae]

NARRATIVE: CASE EVENT DATE: 20181129
